FAERS Safety Report 5918856-X (Version None)
Quarter: 2008Q4

REPORT INFORMATION
  Report Type: 
  Country: None (occurrence: None)
  Receive Date: 20081015
  Receipt Date: 20081007
  Transmission Date: 20090506
  Serious: Yes (Death, Hospitalization)
  Sender: FDA-Public Use
  Company Number: US-GILEAD-2008-0018031

PATIENT
  Sex: Female
  Weight: 99.88 kg

DRUGS (15)
  1. LETAIRIS [Suspect]
     Indication: PULMONARY ARTERIAL HYPERTENSION
     Route: 048
     Dates: start: 20080709
  2. OXYGEN [Concomitant]
  3. LASIX [Concomitant]
     Route: 048
  4. NORVASC [Concomitant]
     Route: 048
  5. LISINOPRIL [Concomitant]
     Route: 048
  6. METOPROLOL TARTRATE [Concomitant]
     Route: 048
  7. ZOCOR [Concomitant]
     Route: 048
  8. GLIPIZIDE [Concomitant]
     Route: 048
  9. METFORMIN [Concomitant]
  10. ACTOS [Concomitant]
     Route: 048
  11. POTASSIUM CHLORIDE [Concomitant]
     Route: 048
  12. ASPIRIN [Concomitant]
     Route: 048
  13. MULTI-VITAMIN [Concomitant]
     Route: 048
  14. TRAVATAN [Concomitant]
     Route: 048
  15. ALPHAGAN [Concomitant]

REACTIONS (3)
  - CHRONIC OBSTRUCTIVE PULMONARY DISEASE [None]
  - COR PULMONALE [None]
  - PULMONARY FIBROSIS [None]
